FAERS Safety Report 25036737 (Version 1)
Quarter: 2025Q1

REPORT INFORMATION
  Report Type: Spontaneous
  Country: CA (occurrence: CA)
  Receive Date: 20250304
  Receipt Date: 20250304
  Transmission Date: 20250408
  Serious: Yes (Other)
  Sender: CSL BEHRING
  Company Number: CA-BEH-2025197212

PATIENT
  Age: 81 Year
  Sex: Male

DRUGS (3)
  1. PRIVIGEN [Suspect]
     Active Substance: HUMAN IMMUNOGLOBULIN G
     Indication: Secondary immunodeficiency
     Route: 042
  2. PRIVIGEN [Suspect]
     Active Substance: HUMAN IMMUNOGLOBULIN G
     Route: 042
  3. LASIX [Concomitant]
     Active Substance: FUROSEMIDE

REACTIONS (28)
  - Vomiting [Recovered/Resolved]
  - Acute pulmonary oedema [Recovered/Resolved]
  - Back pain [Recovered/Resolved]
  - Blood pressure increased [Recovered/Resolved]
  - C-reactive protein increased [Recovered/Resolved]
  - Chills [Recovered/Resolved]
  - Cough [Recovered/Resolved]
  - Crepitations [Recovered/Resolved]
  - Dyspnoea [Recovered/Resolved]
  - Febrile nonhaemolytic transfusion reaction [Recovered/Resolved]
  - Feeling cold [Recovered/Resolved]
  - Headache [Recovered/Resolved]
  - Heart rate increased [Recovered/Resolved]
  - Hypertension [Recovered/Resolved]
  - Hyperthermia [Recovered/Resolved]
  - Hyperventilation [Recovered/Resolved]
  - Hypervolaemia [Recovered/Resolved]
  - Infection [Recovered/Resolved]
  - Lung opacity [Recovered/Resolved]
  - Nausea [Recovered/Resolved]
  - Oxygen saturation decreased [Recovered/Resolved]
  - Oxygen therapy [Recovered/Resolved]
  - Somnolence [Recovered/Resolved]
  - Tachycardia [Recovered/Resolved]
  - Tachypnoea [Recovered/Resolved]
  - Transfusion reaction [Recovered/Resolved]
  - Transfusion-related acute lung injury [Recovered/Resolved]
  - Tremor [Recovered/Resolved]
